FAERS Safety Report 25973466 (Version 5)
Quarter: 2025Q4

REPORT INFORMATION
  Report Type: Spontaneous
  Country: US (occurrence: None)
  Receive Date: 20251029
  Receipt Date: 20251224
  Transmission Date: 20260117
  Serious: Yes (Hospitalization)
  Sender: SYNDAX
  Company Number: US-SYNDAX PHARMACEUTICALS, INC.-2025US000844

PATIENT
  Sex: Female
  Weight: 81.633 kg

DRUGS (2)
  1. REVUFORJ [Suspect]
     Active Substance: REVUMENIB CITRATE
     Indication: Product used for unknown indication
     Dosage: 270 MILLIGRAM, BID
     Route: 061
  2. GILTERITINIB [Concomitant]
     Active Substance: GILTERITINIB
     Indication: Product used for unknown indication
     Dosage: 120 MILLIGRAM, DAILY
     Route: 061

REACTIONS (11)
  - Pyrexia [Unknown]
  - Red blood cell count decreased [Unknown]
  - Bacterial infection [Unknown]
  - Neoplasm recurrence [Unknown]
  - Dry mouth [Unknown]
  - Depressed mood [Unknown]
  - Off label use [Unknown]
  - Fall [Unknown]
  - Blood sodium decreased [Unknown]
  - Fatigue [Unknown]
  - Nausea [Unknown]
